FAERS Safety Report 9536625 (Version 1)
Quarter: 2013Q2

REPORT INFORMATION
  Report Type: Spontaneous
  Country: US (occurrence: None)
  Receive Date: 20130517
  Receipt Date: 20130517
  Transmission Date: 20140414
  Serious: No
  Sender: FDA-Public Use
  Company Number: 1000044332

PATIENT
  Age: 40 Year
  Sex: Female

DRUGS (2)
  1. VIIBRYD (VILAZODONE HYDROCHLORIDE) (10 MILLIGRAM, TABLET) [Suspect]
     Indication: DEPRESSION
     Route: 048
     Dates: start: 201302, end: 201303
  2. VIIBRYD [Concomitant]
     Route: 048
     Dates: start: 2013, end: 2013

REACTIONS (7)
  - Malaise [None]
  - Diarrhoea [None]
  - Paraesthesia [None]
  - Dizziness [None]
  - Hypersomnia [None]
  - Speech disorder [None]
  - Memory impairment [None]
